FAERS Safety Report 14422786 (Version 1)
Quarter: 2018Q1

REPORT INFORMATION
  Report Type: Spontaneous
  Country: US (occurrence: US)
  Receive Date: 20180123
  Receipt Date: 20180123
  Transmission Date: 20180509
  Serious: Yes (Other)
  Sender: FDA-Public Use
  Company Number: US-AJANTA PHARMA USA INC.-2040592

PATIENT
  Age: 48 Year
  Sex: Female
  Weight: 94.09 kg

DRUGS (3)
  1. DULOXETINE (ANDA 208706) [Suspect]
     Active Substance: DULOXETINE
     Indication: NEUROPATHY PERIPHERAL
     Route: 048
     Dates: start: 201711, end: 201712
  2. TOPAMAX [Concomitant]
     Active Substance: TOPIRAMATE
  3. ALLERGY PILL [Concomitant]
     Active Substance: UNSPECIFIED INGREDIENT

REACTIONS (9)
  - Amnesia [Recovering/Resolving]
  - Feeling abnormal [Unknown]
  - Drug withdrawal syndrome [Recovering/Resolving]
  - Aphasia [Recovering/Resolving]
  - Cerebrovascular accident [Recovering/Resolving]
  - Decreased appetite [Recovering/Resolving]
  - Vertigo [Recovering/Resolving]
  - Thinking abnormal [Recovering/Resolving]
  - Balance disorder [Recovering/Resolving]

NARRATIVE: CASE EVENT DATE: 201712
